FAERS Safety Report 7986920-X (Version None)
Quarter: 2011Q4

REPORT INFORMATION
  Report Type: 
  Country: None (occurrence: None)
  Receive Date: 20111216
  Receipt Date: 20110906
  Transmission Date: 20120403
  Serious: Yes (Hospitalization, Other)
  Sender: FDA-Public Use
  Company Number: US-BRISTOL-MYERS SQUIBB COMPANY-16037608

PATIENT
  Age: 4 Decade
  Sex: Male

DRUGS (2)
  1. ABILIFY [Suspect]
     Indication: BIPOLAR I DISORDER
  2. DEPAKOTE [Suspect]

REACTIONS (2)
  - PANCREATITIS [None]
  - DIABETIC KETOACIDOSIS [None]
